FAERS Safety Report 23609461 (Version 1)
Quarter: 2024Q1

REPORT INFORMATION
  Report Type: Spontaneous
  Country: FR (occurrence: FR)
  Receive Date: 20240308
  Receipt Date: 20240308
  Transmission Date: 20240410
  Serious: Yes (Hospitalization)
  Sender: FDA-Public Use
  Company Number: FR-SA-200612647FR

PATIENT
  Age: 61 Year
  Sex: Female

DRUGS (2)
  1. TAXOTERE [Suspect]
     Active Substance: DOCETAXEL
     Indication: Breast cancer metastatic
     Dosage: 120 MG, QCY
     Route: 042
     Dates: start: 20060601, end: 20060601
  2. CAPECITABINE [Suspect]
     Active Substance: CAPECITABINE
     Indication: Breast cancer metastatic
     Dosage: 3000 MG, QD
     Route: 048
     Dates: start: 20060601, end: 20060614

REACTIONS (2)
  - Dermatitis [Recovered/Resolved]
  - Onycholysis [Recovered/Resolved]

NARRATIVE: CASE EVENT DATE: 20060607
